FAERS Safety Report 26071728 (Version 2)
Quarter: 2025Q4

REPORT INFORMATION
  Report Type: Spontaneous
  Country: CN (occurrence: CN)
  Receive Date: 20251120
  Receipt Date: 20251127
  Transmission Date: 20260117
  Serious: Yes (Hospitalization)
  Sender: NOVARTIS
  Company Number: CN-002147023-NVSC2025CN175999

PATIENT
  Age: 10 Year
  Sex: Female
  Weight: 30 kg

DRUGS (3)
  1. OXCARBAZEPINE [Suspect]
     Active Substance: OXCARBAZEPINE
     Indication: Epilepsy
     Dosage: 5 ML, BID
     Route: 048
     Dates: end: 20251107
  2. OXCARBAZEPINE [Suspect]
     Active Substance: OXCARBAZEPINE
     Dosage: 2.5 ML, BID
     Route: 048
     Dates: start: 20251026
  3. OXCARBAZEPINE [Suspect]
     Active Substance: OXCARBAZEPINE
     Dosage: UNK UNK, BID
     Route: 048

REACTIONS (10)
  - Stevens-Johnson syndrome [Recovering/Resolving]
  - Drug hypersensitivity [Unknown]
  - Rash maculo-papular [Unknown]
  - Pruritus [Unknown]
  - Skin fissures [Unknown]
  - Conjunctival hyperaemia [Unknown]
  - Eye discharge [Unknown]
  - Herpes virus infection [Unknown]
  - Blister [Unknown]
  - Seizure [Unknown]

NARRATIVE: CASE EVENT DATE: 20251105
